FAERS Safety Report 15687422 (Version 1)
Quarter: 2018Q4

REPORT INFORMATION
  Report Type: Report from Study
  Country: CA (occurrence: CA)
  Receive Date: 20181205
  Receipt Date: 20181205
  Transmission Date: 20190205
  Serious: Yes (Hospitalization)
  Sender: FDA-Public Use
  Company Number: CA-IPSEN BIOPHARMACEUTICALS, INC.-2018-18614

PATIENT
  Sex: Male

DRUGS (1)
  1. SOMATULINE AUTOGEL 120 MG [Suspect]
     Active Substance: LANREOTIDE ACETATE
     Indication: NEUROENDOCRINE TUMOUR
     Route: 058
     Dates: start: 20180717

REACTIONS (6)
  - Dementia [Unknown]
  - Fall [Unknown]
  - Dizziness [Unknown]
  - Decreased appetite [Unknown]
  - Skin abrasion [Unknown]
  - Malaise [Unknown]
